APPROVED DRUG PRODUCT: BISOPROLOL FUMARATE
Active Ingredient: BISOPROLOL FUMARATE
Strength: 10MG
Dosage Form/Route: TABLET;ORAL
Application: A075644 | Product #002
Applicant: TEVA PHARMACEUTICALS USA
Approved: Jun 26, 2001 | RLD: No | RS: No | Type: DISCN